FAERS Safety Report 23293024 (Version 1)
Quarter: 2023Q4

REPORT INFORMATION
  Report Type: Spontaneous
  Country: US (occurrence: US)
  Receive Date: 20231213
  Receipt Date: 20231213
  Transmission Date: 20240110
  Serious: Yes (Other)
  Sender: FDA-Public Use
  Company Number: US-PFIZER INC-202300430514

PATIENT
  Sex: Male

DRUGS (1)
  1. NARDIL [Suspect]
     Active Substance: PHENELZINE SULFATE
     Dosage: 3 DF, 2X/DAY (TAKES 3 TABS TWICE A DAY/ THREE IN THE MORNING AND THREE AT NIGHT)

REACTIONS (4)
  - Drug dependence [Unknown]
  - Feeling abnormal [Unknown]
  - Product dose omission in error [Unknown]
  - Anxiety [Unknown]
